FAERS Safety Report 5904241-3 (Version None)
Quarter: 2008Q4

REPORT INFORMATION
  Report Type: 
  Country: None (occurrence: None)
  Receive Date: 20081001
  Receipt Date: 20081001
  Transmission Date: 20090506
  Serious: Yes (Hospitalization)
  Sender: FDA-Public Use
  Company Number: None

PATIENT
  Age: 74 Year
  Sex: Male
  Weight: 90.3 kg

DRUGS (1)
  1. HEPARIN [Suspect]
     Indication: STENT PLACEMENT
     Dosage: 4000 UNITS ONCE IV
     Route: 042
     Dates: start: 20080801, end: 20080801

REACTIONS (1)
  - THROMBOCYTOPENIA [None]
